FAERS Safety Report 17741590 (Version 2)
Quarter: 2020Q2

REPORT INFORMATION
  Report Type: Spontaneous
  Country: US (occurrence: US)
  Receive Date: 20200504
  Receipt Date: 20200608
  Transmission Date: 20200714
  Serious: No
  Sender: FDA-Public Use
  Company Number: US-BIOGEN-2020BI00860052

PATIENT
  Sex: Male

DRUGS (1)
  1. TECFIDERA [Suspect]
     Active Substance: DIMETHYL FUMARATE
     Indication: MULTIPLE SCLEROSIS
     Route: 048
     Dates: start: 20180109

REACTIONS (5)
  - Cognitive disorder [Unknown]
  - Speech disorder [Unknown]
  - Attention deficit hyperactivity disorder [Unknown]
  - Frustration tolerance decreased [Unknown]
  - Back disorder [Unknown]
